FAERS Safety Report 17280061 (Version 1)
Quarter: 2020Q1

REPORT INFORMATION
  Report Type: Report from Study
  Country: US (occurrence: US)
  Receive Date: 20200117
  Receipt Date: 20200117
  Transmission Date: 20200409
  Serious: Yes (Hospitalization, Other)
  Sender: FDA-Public Use
  Company Number: US-BRISTOL-MYERS SQUIBB COMPANY-BMS-2018-037131

PATIENT
  Age: 51 Year
  Sex: Female
  Weight: 124.73 kg

DRUGS (3)
  1. ABATACEPT [Suspect]
     Active Substance: ABATACEPT
     Indication: RHEUMATOID ARTHRITIS
     Dosage: 125 MILLIGRAM, QWK
     Route: 058
     Dates: start: 2018
  2. LANTUS [Concomitant]
     Active Substance: INSULIN GLARGINE
     Indication: DIABETES MELLITUS
     Dosage: UNK
     Route: 065
  3. HUMALOG [Concomitant]
     Active Substance: INSULIN LISPRO
     Indication: DIABETES MELLITUS
     Dosage: UNK
     Route: 065

REACTIONS (19)
  - Epistaxis [Unknown]
  - Dizziness [Unknown]
  - Nephropathy [Unknown]
  - Von Willebrand^s disease [Unknown]
  - Memory impairment [Unknown]
  - Fungal infection [Unknown]
  - Body temperature increased [Unknown]
  - Hepatitis B [Unknown]
  - Chest discomfort [Unknown]
  - Cough [Unknown]
  - Infection [Unknown]
  - Type 2 diabetes mellitus [Unknown]
  - Oropharyngeal discomfort [Unknown]
  - Osteoarthritis [Unknown]
  - Pneumonia [Unknown]
  - Dyspnoea exertional [Unknown]
  - Pain [Unknown]
  - Influenza [Unknown]
  - Bronchitis [Unknown]

NARRATIVE: CASE EVENT DATE: 20200106
